FAERS Safety Report 7645424-4 (Version None)
Quarter: 2011Q3

REPORT INFORMATION
  Report Type: 
  Country: None (occurrence: None)
  Receive Date: 20110729
  Receipt Date: 20110623
  Transmission Date: 20111222
  Serious: Yes (Hospitalization)
  Sender: FDA-Public Use
  Company Number: CHPA2011CA05046

PATIENT
  Age: 61 Year
  Sex: Male

DRUGS (3)
  1. TRANSDERM VOYAGER [Suspect]
     Indication: MOTION SICKNESS
     Dosage: 1.5 MG, MORE THAN 1 PER DAY
     Route: 062
     Dates: start: 20090501, end: 20110501
  2. NAPROXEN [Concomitant]
     Indication: MIGRAINE
     Dosage: UNK, UNK
  3. DRUG THERAPY NOS [Concomitant]
     Indication: DYSPEPSIA
     Dosage: UNK, UNK

REACTIONS (8)
  - VOMITING [None]
  - OVERDOSE [None]
  - DRY MOUTH [None]
  - DRUG DEPENDENCE [None]
  - APPLICATION SITE SCAB [None]
  - MEMORY IMPAIRMENT [None]
  - DETOXIFICATION [None]
  - APPLICATION SITE PAIN [None]
